FAERS Safety Report 5594384-9 (Version None)
Quarter: 2008Q1

REPORT INFORMATION
  Report Type: 
  Country: None (occurrence: None)
  Receive Date: 20080117
  Receipt Date: 20080104
  Transmission Date: 20080703
  Serious: Yes (Other)
  Sender: FDA-Public Use
  Company Number: US-BRISTOL-MYERS SQUIBB COMPANY-14033971

PATIENT

DRUGS (3)
  1. REYATAZ [Suspect]
  2. RIFADIN [Suspect]
  3. NORVIR [Suspect]

REACTIONS (2)
  - DRUG INTERACTION [None]
  - FATIGUE [None]
